FAERS Safety Report 25840814 (Version 1)
Quarter: 2025Q3

REPORT INFORMATION
  Report Type: Spontaneous
  Country: US (occurrence: US)
  Receive Date: 20250924
  Receipt Date: 20250924
  Transmission Date: 20251020
  Serious: No
  Sender: CELLTRION
  Company Number: US-CELLTRION INC.-2025US027410

PATIENT

DRUGS (1)
  1. STEQEYMA [Suspect]
     Active Substance: USTEKINUMAB-STBA
     Indication: Product used for unknown indication

REACTIONS (3)
  - Drug delivery system malfunction [Unknown]
  - Accidental exposure to product [Unknown]
  - Exposure via skin contact [Unknown]
